FAERS Safety Report 13414599 (Version 2)
Quarter: 2017Q4

REPORT INFORMATION
  Report Type: Spontaneous
  Country: US (occurrence: US)
  Receive Date: 20170406
  Receipt Date: 20171123
  Transmission Date: 20180320
  Serious: No
  Sender: FDA-Public Use
  Company Number: US-JNJFOC-20170319230

PATIENT
  Sex: Male

DRUGS (20)
  1. RISPERIDONE. [Suspect]
     Active Substance: RISPERIDONE
     Indication: MAJOR DEPRESSION
     Route: 048
     Dates: start: 20130723, end: 20131030
  2. RISPERDAL [Suspect]
     Active Substance: RISPERIDONE
     Indication: BIPOLAR DISORDER
     Dosage: VARYING DOSES OF 02 MG AND 04 MG AND VARYING FREQUENCIES INCLUDED(UNSPECIFIED FREQUENCY/TWICE DAILY)
     Route: 048
     Dates: start: 20070907, end: 20070926
  3. RISPERDAL [Suspect]
     Active Substance: RISPERIDONE
     Indication: BIPOLAR DISORDER
     Dosage: VARYING DOSES OF 02 MG, 04 MG AND 08 MG AND VARYING FREQUENCIES (UNSPECIFIED FREQUENCY/EVERY DAY)
     Route: 048
     Dates: start: 20060715, end: 20070112
  4. RISPERIDONE. [Suspect]
     Active Substance: RISPERIDONE
     Indication: BIPOLAR DISORDER
     Route: 048
     Dates: start: 20081031
  5. RISPERDAL [Suspect]
     Active Substance: RISPERIDONE
     Indication: MAJOR DEPRESSION
     Route: 048
     Dates: end: 200703
  6. RISPERIDONE. [Suspect]
     Active Substance: RISPERIDONE
     Indication: BIPOLAR DISORDER
     Route: 048
     Dates: start: 20130723, end: 20131030
  7. RISPERDAL [Suspect]
     Active Substance: RISPERIDONE
     Indication: BIPOLAR DISORDER
     Route: 048
     Dates: start: 20081031
  8. RISPERDAL [Suspect]
     Active Substance: RISPERIDONE
     Indication: MAJOR DEPRESSION
     Dosage: VARYING DOSES OF 03 MG AND 04 MG AND VARYING FREQUENCIES INCLUDED (EVERY HOUR OF SLEEP/TWICE DAILY)
     Route: 048
     Dates: start: 20081124, end: 20081212
  9. RISPERDAL [Suspect]
     Active Substance: RISPERIDONE
     Indication: MAJOR DEPRESSION
     Dosage: VARYING DOSES OF 02 MG, 04 MG AND 08 MG AND VARYING FREQUENCIES (UNSPECIFIED FREQUENCY/EVERY DAY)
     Route: 048
     Dates: start: 20060715, end: 20070112
  10. RISPERDAL [Suspect]
     Active Substance: RISPERIDONE
     Indication: BIPOLAR DISORDER
     Dosage: VARYING DOSES OF 03 MG AND 04 MG AND VARYING FREQUENCIES INCLUDED (EVERY HOUR OF SLEEP/TWICE DAILY)
     Route: 048
     Dates: start: 20081124, end: 20081212
  11. RISPERDAL [Suspect]
     Active Substance: RISPERIDONE
     Indication: BIPOLAR DISORDER
     Route: 048
     Dates: start: 20041018
  12. RISPERDAL [Suspect]
     Active Substance: RISPERIDONE
     Indication: BIPOLAR DISORDER
     Route: 048
     Dates: start: 20130723, end: 20131030
  13. RISPERDAL [Suspect]
     Active Substance: RISPERIDONE
     Indication: MAJOR DEPRESSION
     Route: 048
     Dates: start: 20041018
  14. RISPERDAL [Suspect]
     Active Substance: RISPERIDONE
     Indication: MAJOR DEPRESSION
     Dosage: VARYING DOSES OF 02 MG AND 04 MG AND VARYING FREQUENCIES INCLUDED(UNSPECIFIED FREQUENCY/TWICE DAILY)
     Route: 048
     Dates: start: 20070907, end: 20070926
  15. RISPERDAL [Suspect]
     Active Substance: RISPERIDONE
     Indication: MAJOR DEPRESSION
     Dosage: VARYING DOSES OF UNSPECIFIED DOSE, 0.5 MG, 01 MG AND 04 MG AND VARYING FREQUENCIES (UNSPECIFIED/BID)
     Route: 048
     Dates: start: 20050116, end: 20050122
  16. RISPERDAL [Suspect]
     Active Substance: RISPERIDONE
     Indication: BIPOLAR DISORDER
     Dosage: VARYING DOSES OF UNSPECIFIED DOSE, 0.5 MG, 01 MG AND 04 MG AND VARYING FREQUENCIES (UNSPECIFIED/BID)
     Route: 048
     Dates: start: 20050116, end: 20050122
  17. RISPERDAL [Suspect]
     Active Substance: RISPERIDONE
     Indication: BIPOLAR DISORDER
     Route: 048
     Dates: end: 200703
  18. RISPERDAL [Suspect]
     Active Substance: RISPERIDONE
     Indication: MAJOR DEPRESSION
     Route: 048
     Dates: start: 20081031
  19. RISPERDAL [Suspect]
     Active Substance: RISPERIDONE
     Indication: MAJOR DEPRESSION
     Route: 048
     Dates: start: 20130723, end: 20131030
  20. RISPERIDONE. [Suspect]
     Active Substance: RISPERIDONE
     Indication: MAJOR DEPRESSION
     Route: 048
     Dates: start: 20081031

REACTIONS (2)
  - Emotional disorder [Unknown]
  - Gynaecomastia [Unknown]
